FAERS Safety Report 5593706-2 (Version None)
Quarter: 2008Q1

REPORT INFORMATION
  Report Type: 
  Country: None (occurrence: None)
  Receive Date: 20080116
  Receipt Date: 20080104
  Transmission Date: 20080703
  Serious: Yes (Other)
  Sender: FDA-Public Use
  Company Number: US-WYE-H01986008

PATIENT
  Sex: Female

DRUGS (3)
  1. EFFEXOR XR [Suspect]
     Route: 048
     Dates: end: 20070601
  2. LEXAPRO [Suspect]
     Dates: start: 20070601
  3. BUPROPION HYDROCHLORIDE [Suspect]
     Indication: DEPRESSION
     Route: 048

REACTIONS (2)
  - BRAIN MASS [None]
  - DEMYELINATING POLYNEUROPATHY [None]
